FAERS Safety Report 10593087 (Version 1)
Quarter: 2014Q4

REPORT INFORMATION
  Report Type: Spontaneous
  Country: US (occurrence: None)
  Receive Date: 20141118
  Receipt Date: 20141118
  Transmission Date: 20150529
  Serious: Yes (Hospitalization)
  Sender: FDA-Public Use
  Company Number: None

PATIENT
  Age: 67 Year
  Sex: Female

DRUGS (20)
  1. SUCRALFATE. [Concomitant]
     Active Substance: SUCRALFATE
  2. FUROSEMIDE. [Concomitant]
     Active Substance: FUROSEMIDE
  3. ALPRAZOLAM. [Concomitant]
     Active Substance: ALPRAZOLAM
  4. PANTOPRAZOLE [Concomitant]
     Active Substance: PANTOPRAZOLE SODIUM
  5. METOPROLOL ER SUCCINATE [Concomitant]
     Active Substance: METOPROLOL SUCCINATE
  6. LORAZEPAM. [Concomitant]
     Active Substance: LORAZEPAM
  7. ASPIRIN. [Concomitant]
     Active Substance: ASPIRIN
  8. OXYCODONE/ACETAMINOPHEN [Concomitant]
     Active Substance: ACETAMINOPHEN\OXYCODONE HYDROCHLORIDE
  9. PROCHLORPERAZINE. [Concomitant]
     Active Substance: PROCHLORPERAZINE
  10. HYDROCHLOROTHIAZIDE. [Concomitant]
     Active Substance: HYDROCHLOROTHIAZIDE
  11. POTASSIUM CHLOR [Concomitant]
  12. POTASSIUM CL [Concomitant]
     Active Substance: POTASSIUM CHLORIDE
  13. DOCUSATE SODIUM. [Concomitant]
     Active Substance: DOCUSATE SODIUM
  14. AMIODARONE [Concomitant]
     Active Substance: AMIODARONE
  15. NITROSTAT [Concomitant]
     Active Substance: NITROGLYCERIN
  16. FENTANYL. [Concomitant]
     Active Substance: FENTANYL
  17. SUTENT [Suspect]
     Active Substance: SUNITINIB MALATE
     Indication: NEOPLASM MALIGNANT
     Dosage: 25MG, QD X 4 WKS, PO
     Route: 048
     Dates: start: 20140124, end: 201409
  18. OXYCODONE [Concomitant]
     Active Substance: OXYCODONE
  19. LOSARTAN [Concomitant]
     Active Substance: LOSARTAN
  20. HYDROCODONE/ACETAMINOP [Concomitant]

REACTIONS (2)
  - Myocardial infarction [None]
  - Toxicity to various agents [None]

NARRATIVE: CASE EVENT DATE: 201409
